FAERS Safety Report 16931326 (Version 1)
Quarter: 2019Q4

REPORT INFORMATION
  Report Type: Spontaneous
  Country: RO (occurrence: RO)
  Receive Date: 20191017
  Receipt Date: 20191017
  Transmission Date: 20200122
  Serious: Yes (Other)
  Sender: FDA-Public Use
  Company Number: RO-ASTRAZENECA-2019SF34619

PATIENT
  Age: 20254 Day
  Sex: Female
  Weight: 113.2 kg

DRUGS (6)
  1. FORXIGA [Suspect]
     Active Substance: DAPAGLIFLOZIN
     Indication: GLYCOSYLATED HAEMOGLOBIN
     Route: 048
     Dates: start: 20180926, end: 20181029
  2. FORXIGA [Suspect]
     Active Substance: DAPAGLIFLOZIN
     Indication: ACUTE PAINFUL NEUROPATHY OF RAPID GLYCAEMIC CONTROL
     Route: 048
     Dates: start: 20180926, end: 20181029
  3. CO-PRENESSA [Concomitant]
     Active Substance: INDAPAMIDE\PERINDOPRIL ERBUMINE
     Indication: HYPERTENSION
     Dosage: 4/1.25
  4. SORTIS [Concomitant]
     Active Substance: ATORVASTATIN
     Indication: DYSLIPIDAEMIA
     Dosage: 4/1.25
  5. FORXIGA [Suspect]
     Active Substance: DAPAGLIFLOZIN
     Indication: TYPE 2 DIABETES MELLITUS
     Route: 048
     Dates: start: 20180926, end: 20181029
  6. METFORMIN [Concomitant]
     Active Substance: METFORMIN HYDROCHLORIDE
     Indication: DIABETES MELLITUS MANAGEMENT
     Dosage: 4/1.25

REACTIONS (3)
  - Agitation [Recovered/Resolved]
  - Headache [Recovered/Resolved]
  - Nausea [Recovered/Resolved]

NARRATIVE: CASE EVENT DATE: 20180926
